FAERS Safety Report 10907748 (Version 1)
Quarter: 2015Q1

REPORT INFORMATION
  Report Type: Report from Study
  Country: GB (occurrence: None)
  Receive Date: 20150309
  Receipt Date: 20150309
  Transmission Date: 20150721
  Serious: Yes (Other)
  Sender: FDA-Public Use
  Company Number: ADR-2015-00466

PATIENT
  Age: 72 Year
  Sex: Female

DRUGS (8)
  1. PAROVEN (TROXERUTIN) [Concomitant]
  2. RANITIDINE [Concomitant]
     Active Substance: RANITIDINE\RANITIDINE HYDROCHLORIDE
  3. PROBANTHINE [Concomitant]
  4. PROPRANOLOL [Concomitant]
     Active Substance: PROPRANOLOL\PROPRANOLOL HYDROCHLORIDE
  5. TEGRETOL [Suspect]
     Active Substance: CARBAMAZEPINE
     Indication: BACK PAIN
  6. LACTULOSE. [Concomitant]
     Active Substance: LACTULOSE
  7. SYNFLEX [Concomitant]
     Active Substance: NAPROXEN SODIUM
  8. BACLOFEN (BACLOFEN) [Suspect]
     Active Substance: BACLOFEN
     Indication: MUSCLE SPASMS

REACTIONS (5)
  - Unresponsive to stimuli [None]
  - Malaise [None]
  - Blepharospasm [None]
  - Confusional state [None]
  - Abnormal behaviour [None]

NARRATIVE: CASE EVENT DATE: 20000901
